FAERS Safety Report 5393739-5 (Version None)
Quarter: 2007Q3

REPORT INFORMATION
  Report Type: 
  Country: None (occurrence: None)
  Receive Date: 20070723
  Receipt Date: 20070718
  Transmission Date: 20080115
  Serious: Yes (Other)
  Sender: FDA-Public Use
  Company Number: US-ASTRAZENECA-2007UW16937

PATIENT
  Age: 79 Year
  Sex: Female

DRUGS (4)
  1. LISINOPRIL [Suspect]
     Route: 048
  2. METFORMIN HCL [Suspect]
  3. DIGITEK [Suspect]
  4. ECOTRIN [Suspect]

REACTIONS (2)
  - CATARACT [None]
  - HYPERTENSION [None]
